FAERS Safety Report 4608792-3 (Version None)
Quarter: 2005Q1

REPORT INFORMATION
  Report Type: 
  Country: None (occurrence: None)
  Receive Date: 20050309
  Receipt Date: 20050222
  Transmission Date: 20050727
  Serious: Yes (Death)
  Sender: FDA-Public Use
  Company Number: 2005-UK-00308UK

PATIENT
  Sex: Male

DRUGS (3)
  1. ATROVENT [Suspect]
     Dosage: 20MCGS/PUFF, 4 PUFFS 4 X DAILY (20 MCG, 4 X DAILY)
     Route: 055
  2. SALBUTAMOL (SALBUTAMOL) [Concomitant]
  3. UNIPHYLLIN CONTINUS (THEOPHYLLINE) (TA) [Concomitant]

REACTIONS (1)
  - LUNG INFECTION PSEUDOMONAL [None]
